FAERS Safety Report 8775736 (Version 1)
Quarter: 2012Q4

REPORT INFORMATION
  Report Type: 
  Country: US (occurrence: US)
  Receive Date: 20120910
  Receipt Date: 20120910
  Transmission Date: 20130627
  Serious: Yes (Other)
  Sender: FDA-Public Use
  Company Number: US-PFIZER INC-2012221167

PATIENT
  Age: 76 Year
  Sex: Female
  Weight: 58.5 kg

DRUGS (3)
  1. LIPITOR [Suspect]
     Indication: CARDIAC DISORDER
     Dosage: 10 mg, daily
  2. SYNTHROID [Concomitant]
     Indication: HYPOTHYROIDISM
     Dosage: 75 ug, daily
  3. FOSAMAX [Concomitant]
     Indication: BONE DISORDER
     Dosage: 70 mg, weekly

REACTIONS (2)
  - Kidney infection [Unknown]
  - Blood urine present [Not Recovered/Not Resolved]
